FAERS Safety Report 6543497-3 (Version None)
Quarter: 2010Q1

REPORT INFORMATION
  Report Type: 
  Country: None (occurrence: None)
  Receive Date: 20100120
  Receipt Date: 20100114
  Transmission Date: 20100710
  Serious: Yes (Hospitalization)
  Sender: FDA-Public Use
  Company Number: B0612862A

PATIENT
  Sex: Female

DRUGS (9)
  1. VALTREX [Suspect]
     Indication: HERPES ZOSTER
     Dosage: 1000MG THREE TIMES PER DAY
     Route: 048
     Dates: start: 20091202, end: 20091205
  2. MIGLITOL [Concomitant]
     Indication: DIABETES MELLITUS
     Dosage: 100MG PER DAY
     Route: 048
  3. ADALAT CC [Concomitant]
     Indication: HYPERTENSION
     Dosage: 10MG PER DAY
     Route: 048
  4. CRESTOR [Concomitant]
     Indication: HYPERTENSION
     Dosage: 2.5MG PER DAY
     Route: 048
  5. MELBIN [Concomitant]
     Indication: DIABETES MELLITUS
     Dosage: 500MG PER DAY
     Route: 048
  6. GASTER D [Concomitant]
     Indication: GASTRITIS
     Dosage: 10MG PER DAY
     Route: 048
  7. EPADEL S [Concomitant]
     Dosage: 1800MG PER DAY
     Route: 048
  8. FLOMOX [Concomitant]
     Dates: start: 20091202
  9. CALONAL [Concomitant]
     Route: 065
     Dates: start: 20091202

REACTIONS (1)
  - NEPHRITIS [None]
